FAERS Safety Report 12795076 (Version 2)
Quarter: 2016Q4

REPORT INFORMATION
  Report Type: Report from Study
  Country: CA (occurrence: CA)
  Receive Date: 20160929
  Receipt Date: 20161011
  Transmission Date: 20170207
  Serious: Yes (Hospitalization, Other)
  Sender: FDA-Public Use
  Company Number: CA-AMGEN-CANSL2016130276

PATIENT
  Age: 81 Year
  Sex: Female

DRUGS (12)
  1. METHOTREXATE. [Suspect]
     Active Substance: METHOTREXATE
     Indication: RHEUMATOID ARTHRITIS
     Dosage: UNK
     Route: 065
     Dates: start: 2003
  2. IRON [Concomitant]
     Active Substance: IRON
     Route: 065
  3. FISH OIL [Concomitant]
     Active Substance: FISH OIL
     Route: 065
  4. GLUCOSAMINE + CHONDROITIN [Concomitant]
     Route: 065
  5. PLAQUENIL [Concomitant]
     Active Substance: HYDROXYCHLOROQUINE SULFATE
     Dosage: UNK
  6. CALCIUM [Concomitant]
     Active Substance: CALCIUM
     Dosage: UNK
     Route: 065
  7. PLAVIX [Concomitant]
     Active Substance: CLOPIDOGREL BISULFATE
     Route: 065
  8. VITAMIN D [Concomitant]
     Active Substance: CHOLECALCIFEROL
     Dosage: 2000 IU, UNK
     Route: 065
  9. MULTIVITAMIN [Concomitant]
     Active Substance: VITAMINS
     Dosage: UNK
     Route: 065
  10. VITAMIN C [Concomitant]
     Active Substance: ASCORBIC ACID
     Dosage: UNK
  11. ABX [Concomitant]
     Dosage: UNK
     Dates: start: 201609
  12. PROLIA [Suspect]
     Active Substance: DENOSUMAB
     Indication: OSTEOPOROSIS
     Dosage: UNK
     Route: 065
     Dates: start: 20150417

REACTIONS (9)
  - Infection [Not Recovered/Not Resolved]
  - Cough [Not Recovered/Not Resolved]
  - Lung carcinoma cell type unspecified stage II [Unknown]
  - Cardiac pacemaker insertion [Unknown]
  - Dyspnoea [Unknown]
  - Heart valve replacement [Unknown]
  - Fatigue [Not Recovered/Not Resolved]
  - Blood calcium increased [Not Recovered/Not Resolved]
  - Throat irritation [Unknown]

NARRATIVE: CASE EVENT DATE: 201605
